FAERS Safety Report 19620553 (Version 4)
Quarter: 2022Q1

REPORT INFORMATION
  Report Type: Spontaneous
  Country: US (occurrence: US)
  Receive Date: 20210728
  Receipt Date: 20220201
  Transmission Date: 20220424
  Serious: No
  Sender: FDA-Public Use
  Company Number: US-ABBVIE-21K-163-4003963-00

PATIENT
  Age: 31 Year
  Sex: Female
  Weight: 154.36 kg

DRUGS (5)
  1. HUMIRA [Suspect]
     Active Substance: ADALIMUMAB
     Indication: Rheumatoid arthritis
     Route: 058
     Dates: start: 202007
  2. MODERNA COVID-19 VACCINE [Concomitant]
     Active Substance: ELASOMERAN
     Indication: COVID-19 immunisation
     Dosage: MODERNA
     Route: 030
     Dates: start: 20210209, end: 20210209
  3. MODERNA COVID-19 VACCINE [Concomitant]
     Active Substance: ELASOMERAN
     Dosage: MODERNA
     Route: 030
     Dates: start: 20210312, end: 20210312
  4. MELOXICAM [Concomitant]
     Active Substance: MELOXICAM
     Indication: Rheumatoid arthritis
  5. CLOMIPHENE [Concomitant]
     Active Substance: CLOMIPHENE
     Indication: Infertility

REACTIONS (7)
  - Paralysis [Not Recovered/Not Resolved]
  - Depression [Recovering/Resolving]
  - Anxiety [Recovering/Resolving]
  - Hepatomegaly [Not Recovered/Not Resolved]
  - Stress [Recovering/Resolving]
  - Fatigue [Not Recovered/Not Resolved]
  - Headache [Recovering/Resolving]

NARRATIVE: CASE EVENT DATE: 20200701
